FAERS Safety Report 24651714 (Version 1)
Quarter: 2024Q4

REPORT INFORMATION
  Report Type: Spontaneous
  Country: GB (occurrence: GB)
  Receive Date: 20241122
  Receipt Date: 20241122
  Transmission Date: 20250115
  Serious: Yes (Hospitalization, Other)
  Sender: MSN LABORATORIES PRIVATE LIMITED
  Company Number: None

PATIENT

DRUGS (1)
  1. ATORVASTATIN [Suspect]
     Active Substance: ATORVASTATIN
     Indication: Product used for unknown indication
     Dosage: 20MG
     Route: 065
     Dates: start: 20240708, end: 20240801

REACTIONS (8)
  - Anxiety [Recovering/Resolving]
  - Liver injury [Unknown]
  - Back pain [Unknown]
  - Somnolence [Unknown]
  - Fear [Unknown]
  - Liver function test abnormal [Unknown]
  - Muscle spasms [Unknown]
  - Lethargy [Unknown]

NARRATIVE: CASE EVENT DATE: 20240708
